FAERS Safety Report 8917775 (Version 1)
Quarter: 2012Q4

REPORT INFORMATION
  Report Type: 
  Country: JP (occurrence: JP)
  Receive Date: 20121120
  Receipt Date: 20121120
  Transmission Date: 20130627
  Serious: Yes (Hospitalization)
  Sender: FDA-Public Use
  Company Number: JP-BAXTER-2012BAX023764

PATIENT
  Age: 31 Year
  Sex: Female
  Weight: 47 kg

DRUGS (2)
  1. DIANEAL-N PD-4 1.5 [Suspect]
     Indication: RENAL FAILURE CHRONIC
     Route: 033
  2. EXTRANEAL PD SOLUTION [Suspect]
     Indication: RENAL FAILURE CHRONIC
     Route: 033
     Dates: start: 20121019, end: 20121026

REACTIONS (3)
  - Eosinophil count increased [Recovered/Resolved]
  - Henoch-Schonlein purpura [Recovered/Resolved]
  - Purpura [Recovered/Resolved]
